FAERS Safety Report 13964754 (Version 1)
Quarter: 2017Q3

REPORT INFORMATION
  Report Type: Spontaneous
  Country: US (occurrence: US)
  Receive Date: 20170913
  Receipt Date: 20170913
  Transmission Date: 20171128
  Serious: Yes (Other)
  Sender: FDA-Public Use
  Company Number: US-JNJFOC-20170608203

PATIENT
  Age: 43 Year
  Sex: Male
  Weight: 73.47 kg

DRUGS (5)
  1. TRUVADA [Suspect]
     Active Substance: EMTRICITABINE\TENOFOVIR DISOPROXIL FUMARATE
     Indication: HIV INFECTION
     Route: 048
     Dates: start: 20130808, end: 20170102
  2. IBUPROFEN. [Concomitant]
     Active Substance: IBUPROFEN
     Route: 065
  3. LEVOTHYROXINE. [Concomitant]
     Active Substance: LEVOTHYROXINE
     Route: 065
  4. EDURANT [Suspect]
     Active Substance: RILPIVIRINE HYDROCHLORIDE
     Indication: HIV INFECTION
     Route: 048
     Dates: start: 20130808, end: 20170102
  5. EMTRICITABINE W/RILPIVIRINE/TENOFOVIR ALAFENAMIDE [Suspect]
     Active Substance: EMTRICITABINE\RILPIVIRINE HYDROCHLORIDE\TENOFOVIR ALAFENAMIDE FUMARATE
     Indication: HIV INFECTION
     Route: 065
     Dates: start: 201701

REACTIONS (1)
  - Nephrotic syndrome [Recovering/Resolving]

NARRATIVE: CASE EVENT DATE: 20161230
